FAERS Safety Report 25983459 (Version 1)
Quarter: 2025Q4

REPORT INFORMATION
  Report Type: Spontaneous
  Country: EU (occurrence: EU)
  Receive Date: 20251031
  Receipt Date: 20251031
  Transmission Date: 20260118
  Serious: Yes (Other)
  Sender: RANBAXY
  Company Number: EU-SUN PHARMACEUTICAL INDUSTRIES LTD-2025RR-532767

PATIENT
  Age: 53 Year
  Sex: Female

DRUGS (2)
  1. MORPHINE [Suspect]
     Active Substance: MORPHINE
     Indication: Osteosarcoma
     Dosage: 8 MILLIGRAM, DAILY
     Route: 037
  2. BUPIVACAINE [Suspect]
     Active Substance: BUPIVACAINE
     Indication: Osteosarcoma
     Dosage: 3.5 MILLIGRAM, DAILY
     Route: 037

REACTIONS (6)
  - Drug ineffective [Unknown]
  - Constipation [Unknown]
  - Drug tolerance [Unknown]
  - Pain [Unknown]
  - Visual analogue scale [Unknown]
  - Neuralgia [Unknown]
